FAERS Safety Report 25711906 (Version 3)
Quarter: 2025Q4

REPORT INFORMATION
  Report Type: Spontaneous
  Country: US (occurrence: None)
  Receive Date: 20250821
  Receipt Date: 20251017
  Transmission Date: 20260118
  Serious: No
  Sender: INCYTE
  Company Number: US-INCYTE CORPORATION-2025IN008811

PATIENT
  Age: 59 Year

DRUGS (2)
  1. JAKAFI [Suspect]
     Active Substance: RUXOLITINIB
     Indication: B-cell lymphoma
     Dosage: 5 MILLIGRAM, BID
  2. JAKAFI [Suspect]
     Active Substance: RUXOLITINIB
     Dosage: UNK (DOSE DECREASED)
     Route: 065

REACTIONS (3)
  - Muscle spasms [Unknown]
  - Anaemia [Unknown]
  - Off label use [Unknown]
